FAERS Safety Report 23090988 (Version 2)
Quarter: 2023Q4

REPORT INFORMATION
  Report Type: Spontaneous
  Country: US (occurrence: US)
  Receive Date: 20231020
  Receipt Date: 20231117
  Transmission Date: 20240109
  Serious: Yes (Hospitalization, Other)
  Sender: FDA-Public Use
  Company Number: US-BAXTER-2023BAX033368

PATIENT
  Age: 67 Year
  Sex: Male
  Weight: 103 kg

DRUGS (9)
  1. VANCOMYCIN [Suspect]
     Active Substance: VANCOMYCIN
     Indication: Peritonitis bacterial
     Dosage: 2G X1, 1.5 X 2 IN EVERY FIVE DAYS
     Route: 033
     Dates: start: 20230905, end: 20230916
  2. CIPROFLOXACIN [Suspect]
     Active Substance: CIPROFLOXACIN
     Indication: Peritonitis bacterial
     Dosage: UNK
     Route: 065
     Dates: start: 202309
  3. CEFEPIME [Suspect]
     Active Substance: CEFEPIME HYDROCHLORIDE
     Indication: Peritonitis bacterial
     Dosage: 1 GM QD, GIVEN UNTIL HOSPITALISATION
     Route: 033
     Dates: start: 20230830, end: 202309
  4. FORTAZ [Suspect]
     Active Substance: CEFTAZIDIME SODIUM
     Indication: Evidence based treatment
     Dosage: 1.5 GRAM
     Route: 033
     Dates: start: 20230901, end: 20230905
  5. FORTAZ [Suspect]
     Active Substance: CEFTAZIDIME SODIUM
     Indication: Peritonitis bacterial
  6. DIFLUCAN [Suspect]
     Active Substance: FLUCONAZOLE
     Indication: Peritonitis bacterial
     Dosage: 200 MG, QOV
     Route: 048
     Dates: start: 20230728, end: 20230910
  7. ANCEF [Suspect]
     Active Substance: CEFAZOLIN SODIUM
     Indication: Evidence based treatment
     Dosage: 1500 MG
     Route: 033
     Dates: start: 20230901, end: 20230905
  8. ANCEF [Suspect]
     Active Substance: CEFAZOLIN SODIUM
     Indication: Peritonitis bacterial
  9. RIFAMYCIN SODIUM [Suspect]
     Active Substance: RIFAMYCIN SODIUM
     Indication: Peritonitis bacterial
     Dosage: 300 MG TWICE DAILY FOR 14 DAYS
     Route: 065
     Dates: start: 20230914

REACTIONS (4)
  - Fungal peritonitis [Recovered/Resolved]
  - Peritoneal effluent abnormal [Recovered/Resolved]
  - Peritoneal cloudy effluent [Recovered/Resolved]
  - Abdominal pain [Recovered/Resolved]

NARRATIVE: CASE EVENT DATE: 20231013
